FAERS Safety Report 10329932 (Version 1)
Quarter: 2014Q3

REPORT INFORMATION
  Report Type: Spontaneous
  Country: BR (occurrence: BR)
  Receive Date: 20140721
  Receipt Date: 20140721
  Transmission Date: 20150326
  Serious: Yes (Other)
  Sender: FDA-Public Use
  Company Number: BR-GLAXOSMITHKLINE-A1081661A

PATIENT
  Age: 63 Year
  Sex: Male
  Weight: 78 kg

DRUGS (5)
  1. NORTRIPTYLINE [Concomitant]
     Active Substance: NORTRIPTYLINE
     Indication: SOMNOLENCE
  2. PANTOPRAZOLE [Concomitant]
     Active Substance: PANTOPRAZOLE SODIUM
     Indication: GASTRITIS
  3. CLONAZEPAM. [Concomitant]
     Active Substance: CLONAZEPAM
     Indication: DEPRESSION
  4. TEGRETOL [Concomitant]
     Active Substance: CARBAMAZEPINE
     Indication: DEPRESSION
  5. COMBODART [Suspect]
     Active Substance: DUTASTERIDE\TAMSULOSIN
     Indication: PROSTATIC DISORDER
     Dosage: 1CAP PER DAY
     Route: 048
     Dates: start: 201405

REACTIONS (11)
  - Rhinitis [Not Recovered/Not Resolved]
  - Rhinorrhoea [Unknown]
  - Diarrhoea [Recovered/Resolved]
  - Varicocele [Not Recovered/Not Resolved]
  - Testicular oedema [Not Recovered/Not Resolved]
  - Sneezing [Unknown]
  - Testicular haemorrhage [Recovered/Resolved]
  - Nodule [Not Recovered/Not Resolved]
  - Testicular pain [Not Recovered/Not Resolved]
  - Libido decreased [Not Recovered/Not Resolved]
  - Depression [Not Recovered/Not Resolved]

NARRATIVE: CASE EVENT DATE: 20140614
